FAERS Safety Report 9973584 (Version 1)
Quarter: 2014Q1

REPORT INFORMATION
  Report Type: Spontaneous
  Country: ZA (occurrence: ZA)
  Receive Date: 20140306
  Receipt Date: 20140306
  Transmission Date: 20141002
  Serious: Yes (Other)
  Sender: FDA-Public Use
  Company Number: ZA-PFIZER INC-2014064122

PATIENT
  Age: 28 Year
  Sex: Female

DRUGS (4)
  1. LYRICA [Suspect]
     Indication: PAIN
     Dosage: 75 MG, 2X/DAY (BD)
  2. MORPHINE [Concomitant]
  3. OXYCONTIN [Concomitant]
  4. OMEPRAZOLE [Concomitant]
     Dosage: 10 MG, 1X/DAY (ONE THE FIRST DAY AND THE OTHER ONE THE FOLLOWING DAY) FOR 2 DAYS

REACTIONS (2)
  - Paralysis [Unknown]
  - Hypokinesia [Unknown]
